FAERS Safety Report 7157209-6 (Version None)
Quarter: 2010Q4

REPORT INFORMATION
  Report Type: 
  Country: None (occurrence: None)
  Receive Date: 20101214
  Receipt Date: 20100107
  Transmission Date: 20110411
  Serious: No
  Sender: FDA-Public Use
  Company Number: US-ASTRAZENECA-2009SE30961

PATIENT
  Age: 864 Month
  Sex: Female
  Weight: 102.1 kg

DRUGS (6)
  1. CRESTOR [Suspect]
     Indication: HYPERLIPIDAEMIA
     Route: 048
     Dates: start: 20060101, end: 20091001
  2. NEXIUM [Concomitant]
     Route: 048
     Dates: start: 20060101
  3. GLUCOTROL [Concomitant]
     Route: 048
     Dates: start: 20080101
  4. DIOVAN [Concomitant]
     Route: 048
     Dates: start: 20060101
  5. ASPIRIN [Concomitant]
  6. FOSAMAX [Concomitant]

REACTIONS (3)
  - BLOOD CREATININE INCREASED [None]
  - BLOOD UREA INCREASED [None]
  - PROTEINURIA [None]
